FAERS Safety Report 5488107-1 (Version None)
Quarter: 2007Q4

REPORT INFORMATION
  Report Type: 
  Country: None (occurrence: None)
  Receive Date: 20071002
  Receipt Date: 20070611
  Transmission Date: 20080405
  Serious: Yes (Hospitalization)
  Sender: FDA-Public Use
  Company Number: WAES 0706USA01929

PATIENT
  Age: 3 Year
  Sex: Female

DRUGS (1)
  1. SINGULAIR [Suspect]
     Dosage: 4 MG PO
     Route: 048

REACTIONS (1)
  - HYPERSENSITIVITY [None]
